FAERS Safety Report 5871433-1 (Version None)
Quarter: 2008Q3

REPORT INFORMATION
  Report Type: 
  Country: None (occurrence: None)
  Receive Date: 20080905
  Receipt Date: 20080123
  Transmission Date: 20090109
  Serious: No
  Sender: FDA-Public Use
  Company Number: A0704915A

PATIENT
  Age: 50 Year
  Sex: Female

DRUGS (5)
  1. REQUIP [Suspect]
     Indication: RESTLESS LEGS SYNDROME
     Dosage: .5MG PER DAY
     Route: 048
     Dates: start: 20071215
  2. PROTONIX [Concomitant]
  3. PREMARIN [Concomitant]
  4. LABETALOL HCL [Concomitant]
  5. ALLEGRA [Concomitant]

REACTIONS (1)
  - MUSCLE SPASMS [None]
